FAERS Safety Report 5702684-4 (Version None)
Quarter: 2008Q2

REPORT INFORMATION
  Report Type: 
  Country: None (occurrence: None)
  Receive Date: 20080408
  Receipt Date: 20080305
  Transmission Date: 20081010
  Serious: Yes (Other)
  Sender: FDA-Public Use
  Company Number: GB-MHRA-ADR 20226777

PATIENT
  Age: 65 Year
  Sex: Female

DRUGS (5)
  1. TERBINAFINE HCL [Suspect]
     Indication: TINEA PEDIS
     Dosage: 250 MG
     Route: 048
     Dates: start: 20070301, end: 20080101
  2. ASPIRIN [Concomitant]
  3. ATENOLOL [Concomitant]
  4. ATORVASTATIN CALCIUM [Concomitant]
  5. LOSARTAN POTASSIUM [Concomitant]

REACTIONS (1)
  - RENAL IMPAIRMENT [None]
